FAERS Safety Report 10692127 (Version 1)
Quarter: 2015Q1

REPORT INFORMATION
  Report Type: Spontaneous
  Country: US (occurrence: US)
  Receive Date: 20150106
  Receipt Date: 20150106
  Transmission Date: 20150720
  Serious: Yes (Hospitalization, Other)
  Sender: FDA-Public Use
  Company Number: US-JNJFOC-20141217768

PATIENT
  Sex: Male

DRUGS (27)
  1. ASCORBIC ACID. [Concomitant]
     Active Substance: ASCORBIC ACID
     Route: 048
  2. ROXICODONE [Concomitant]
     Active Substance: OXYCODONE HYDROCHLORIDE
     Dosage: EVERY 4 HOURS AS NECESSARY
     Route: 048
  3. ZOCOR [Concomitant]
     Active Substance: SIMVASTATIN
     Dosage: NIGHTLY
     Route: 048
  4. NOVOLOG [Concomitant]
     Active Substance: INSULIN ASPART
     Dosage: 25 UNITS WITH BREAKFAST, 20 UNITS WITH LUNCH AND 30 UNITS WITH DINNER
     Route: 058
  5. FLECAINIDE [Concomitant]
     Active Substance: FLECAINIDE
     Route: 065
  6. MULTIVITAMIN WITH MINERALS [Concomitant]
     Active Substance: MINERALS\VITAMINS
     Route: 048
  7. COUMADIN [Concomitant]
     Active Substance: WARFARIN SODIUM
     Dosage: NIGHTLY
     Route: 048
  8. DILTIAZEM [Concomitant]
     Active Substance: DILTIAZEM
     Route: 065
  9. LANOXIN [Concomitant]
     Active Substance: DIGOXIN
     Route: 048
  10. LOSARTAN [Concomitant]
     Active Substance: LOSARTAN
     Route: 065
  11. TORADOL [Concomitant]
     Active Substance: KETOROLAC TROMETHAMINE
     Route: 042
  12. TYLENOL [Suspect]
     Active Substance: ACETAMINOPHEN
     Indication: PAIN
     Dosage: AS NEEDED
     Route: 048
  13. ZYRTEC [Concomitant]
     Active Substance: CETIRIZINE HYDROCHLORIDE
     Route: 048
  14. POTASSIUM CHLORIDE. [Concomitant]
     Active Substance: POTASSIUM CHLORIDE
     Route: 048
  15. PREDNISONE. [Concomitant]
     Active Substance: PREDNISONE
     Route: 065
  16. DUONEB [Concomitant]
     Active Substance: ALBUTEROL SULFATE\IPRATROPIUM BROMIDE
     Route: 065
  17. LEVEMIR [Concomitant]
     Active Substance: INSULIN DETEMIR
     Dosage: 80 UNITS EVERY EVENING
     Route: 058
  18. LASIX [Concomitant]
     Active Substance: FUROSEMIDE
     Dosage: 0.5 TABLET DAILY
     Route: 048
  19. TIKOSYN [Concomitant]
     Active Substance: DOFETILIDE
     Indication: ATRIAL FIBRILLATION
     Dosage: FOR 10 DAYS
     Route: 048
     Dates: start: 20140909
  20. CARDIZEM [Concomitant]
     Active Substance: DILTIAZEM HYDROCHLORIDE
     Route: 048
  21. COLACE [Concomitant]
     Active Substance: DOCUSATE SODIUM
     Route: 048
  22. MORPHINE [Concomitant]
     Active Substance: MORPHINE
     Route: 042
  23. TYLENOL [Suspect]
     Active Substance: ACETAMINOPHEN
     Route: 048
  24. FLEXERIL [Concomitant]
     Active Substance: CYCLOBENZAPRINE HYDROCHLORIDE
     Route: 048
  25. DOXYCYCLINE. [Concomitant]
     Active Substance: DOXYCYCLINE
     Indication: CHRONIC OBSTRUCTIVE PULMONARY DISEASE
     Route: 065
  26. MIRALAX [Concomitant]
     Active Substance: POLYETHYLENE GLYCOL 3350
     Dosage: DAILY AS NEEDED
     Route: 048
  27. SOTALOL. [Concomitant]
     Active Substance: SOTALOL
     Route: 065

REACTIONS (2)
  - Drug ineffective [Unknown]
  - Sleep disorder due to general medical condition, insomnia type [Unknown]
